FAERS Safety Report 6813759-0 (Version None)
Quarter: 2010Q3

REPORT INFORMATION
  Report Type: 
  Country: None (occurrence: None)
  Receive Date: 20100701
  Receipt Date: 20100623
  Transmission Date: 20110219
  Serious: Yes (Other)
  Sender: FDA-Public Use
  Company Number: US-AMGEN-KDL420257

PATIENT
  Sex: Female

DRUGS (1)
  1. ENBREL [Suspect]
     Indication: PRODUCT USED FOR UNKNOWN INDICATION
     Route: 058
     Dates: start: 20090601, end: 20100613

REACTIONS (6)
  - DIZZINESS [None]
  - DRY EYE [None]
  - NAUSEA [None]
  - PHOTOPHOBIA [None]
  - RETINAL DISORDER [None]
  - VISION BLURRED [None]
